FAERS Safety Report 24136102 (Version 1)
Quarter: 2024Q3

REPORT INFORMATION
  Report Type: Spontaneous
  Country: CN (occurrence: CN)
  Receive Date: 20240725
  Receipt Date: 20240725
  Transmission Date: 20241017
  Serious: Yes (Hospitalization)
  Sender: ACCORD
  Company Number: CN-MLMSERVICE-20240710-PI126486-00270-1

PATIENT
  Age: 42 Year
  Sex: Female

DRUGS (3)
  1. HYDROXYCHLOROQUINE [Suspect]
     Active Substance: HYDROXYCHLOROQUINE
     Indication: Subacute cutaneous lupus erythematosus
     Dates: start: 2021
  2. THALIDOMIDE [Suspect]
     Active Substance: THALIDOMIDE
     Indication: Subacute cutaneous lupus erythematosus
     Dates: start: 2021
  3. METHYLPREDNISOLONE [Suspect]
     Active Substance: METHYLPREDNISOLONE
     Indication: Subacute cutaneous lupus erythematosus
     Dates: start: 2021

REACTIONS (1)
  - Lepromatous leprosy [Recovering/Resolving]

NARRATIVE: CASE EVENT DATE: 20231201
